FAERS Safety Report 17104877 (Version 2)
Quarter: 2022Q2

REPORT INFORMATION
  Report Type: Other
  Country: IT (occurrence: IT)
  Receive Date: 20191203
  Receipt Date: 20220509
  Transmission Date: 20220721
  Serious: Yes (Death, Hospitalization)
  Sender: FDA-Public Use
  Company Number: IT-CELLTRION HEALTHCARE HUNGARY KFT-2019IT026058

PATIENT
  Age: 61 Year
  Sex: Male
  Weight: 63 kg

DRUGS (7)
  1. RITUXIMAB [Suspect]
     Active Substance: RITUXIMAB
     Indication: Product used for unknown indication
     Dosage: IN /NOV/2018, HE RECEIVED MOST RECENT DOSE OF RITUXIMAB.
     Route: 041
     Dates: start: 201806
  2. LENALIDOMIDE [Suspect]
     Active Substance: LENALIDOMIDE
     Indication: Product used for unknown indication
     Route: 048
     Dates: start: 20190130, end: 20190219
  3. TRUXIMA [Suspect]
     Active Substance: RITUXIMAB-ABBS
     Indication: Diffuse large B-cell lymphoma
     Dosage: ON 07/NOV/2018, HE RECEIVED MOST RECENT DOSE OF TRUXIMA.
     Route: 065
     Dates: start: 20180626
  4. CYCLOPHOSPHAMIDE [Suspect]
     Active Substance: CYCLOPHOSPHAMIDE
     Indication: Diffuse large B-cell lymphoma
     Dosage: 375 MG/EV EVERY 3 WEEKS (5 CYCLES)
     Route: 065
  5. DOXORUBICIN HYDROCHLORIDE [Suspect]
     Active Substance: DOXORUBICIN HYDROCHLORIDE
     Indication: Diffuse large B-cell lymphoma
     Dosage: 375 MG/EV EVERY 3 WEEKS (5 CYCLES)
     Route: 065
  6. PREDNISONE [Suspect]
     Active Substance: PREDNISONE
     Indication: Diffuse large B-cell lymphoma
     Dosage: 375 MG/EV EVERY 3 WEEKS (5 CYCLES)
     Route: 065
  7. VINCRISTINE SULFATE [Suspect]
     Active Substance: VINCRISTINE SULFATE
     Indication: Diffuse large B-cell lymphoma
     Dosage: 375 MG/EV EVERY 3 WEEKS (5 CYCLES)
     Route: 065

REACTIONS (12)
  - Disease progression [Fatal]
  - Thrombocytopenia [Recovered/Resolved]
  - Asthenia [Unknown]
  - Klebsiella infection [Recovered/Resolved]
  - Pain [Recovered/Resolved]
  - Hypotension [Recovered/Resolved]
  - Pancytopenia [Unknown]
  - Cellulitis [Recovered/Resolved]
  - Pyrexia [Recovered/Resolved]
  - Constipation [Unknown]
  - Blood lactate dehydrogenase increased [Unknown]
  - Dysphagia [Unknown]

NARRATIVE: CASE EVENT DATE: 20181229
